FAERS Safety Report 16348550 (Version 2)
Quarter: 2019Q2

REPORT INFORMATION
  Report Type: Spontaneous
  Country: JP (occurrence: JP)
  Receive Date: 20190523
  Receipt Date: 20190626
  Transmission Date: 20190711
  Serious: Yes (Other)
  Sender: FDA-Public Use
  Company Number: PHJP2019JP005533

PATIENT
  Sex: Female

DRUGS (6)
  1. CLARITIN [Concomitant]
     Active Substance: LORATADINE
     Indication: RENAL TRANSPLANT
     Dosage: 200 MG, 1 DAY
     Route: 065
     Dates: start: 20171212
  2. NEORAL [Suspect]
     Active Substance: CYCLOSPORINE
     Indication: RENAL TRANSPLANT
     Dosage: 70 MG, 1 DAY
     Route: 048
     Dates: start: 20171212, end: 20171212
  3. CELLCEPT [Suspect]
     Active Substance: MYCOPHENOLATE MOFETIL\MYCOPHENOLATE MOFETIL HYDROCHLORIDE
     Indication: RENAL TRANSPLANT
     Dosage: 1000 MG, 1 DAY
     Route: 065
     Dates: start: 20171212
  4. CLARITIN [Concomitant]
     Active Substance: LORATADINE
     Indication: IMMUNOSUPPRESSION
  5. NEORAL [Suspect]
     Active Substance: CYCLOSPORINE
     Indication: IMMUNOSUPPRESSION
     Dosage: 50 MG, 1 DAY
     Route: 048
     Dates: start: 20171213
  6. CELLCEPT [Suspect]
     Active Substance: MYCOPHENOLATE MOFETIL\MYCOPHENOLATE MOFETIL HYDROCHLORIDE
     Indication: IMMUNOSUPPRESSION

REACTIONS (1)
  - Diffuse panbronchiolitis [Recovering/Resolving]

NARRATIVE: CASE EVENT DATE: 20171212
